FAERS Safety Report 8763876 (Version 1)
Quarter: 2012Q4

REPORT INFORMATION
  Report Type: 
  Country: DE (occurrence: DE)
  Receive Date: 20120831
  Receipt Date: 20120831
  Transmission Date: 20130627
  Serious: Yes (Hospitalization)
  Sender: FDA-Public Use
  Company Number: DE-MYLANLABS-2012S1017346

PATIENT
  Age: 24 Year
  Sex: Female
  Weight: 90 kg

DRUGS (9)
  1. VENLAFAXINE [Suspect]
     Indication: INTENTIONAL OVERDOSE
     Dosage: DF = 150mg extended-release tablet
     Route: 048
  2. VENLAFAXINE [Suspect]
     Indication: DEPRESSION
     Dosage: DF = 150mg extended-release tablet
     Route: 048
  3. VENLAFAXINE [Suspect]
     Indication: INTENTIONAL OVERDOSE
     Dosage: 150mg extended-release 1 x 1
     Route: 048
  4. VENLAFAXINE [Suspect]
     Indication: DEPRESSION
     Dosage: 150mg extended-release 1 x 1
     Route: 048
  5. SEROQUEL [Interacting]
     Indication: DEPRESSION
     Dosage: 500mg 1 x 1
     Route: 065
  6. DIAZEPAM [Interacting]
     Indication: SEROTONIN SYNDROME
     Route: 042
  7. MIDAZOLAM [Interacting]
     Indication: SEROTONIN SYNDROME
     Dosage: up to 0.2 mg/kg/h using the perfusor
     Route: 050
  8. CHARCOAL [Concomitant]
     Indication: TOXICITY TO VARIOUS AGENTS
     Route: 065
  9. ERTAPENEM [Concomitant]
     Indication: PNEUMONIA ASPIRATION
     Dosage: 1 g/d
     Route: 065

REACTIONS (9)
  - Serotonin syndrome [Recovering/Resolving]
  - Rhabdomyolysis [Unknown]
  - Toxicity to various agents [Recovering/Resolving]
  - Suicidal ideation [Recovering/Resolving]
  - Intentional overdose [Recovering/Resolving]
  - Inhibitory drug interaction [Unknown]
  - Mydriasis [Unknown]
  - Clonic convulsion [Unknown]
  - Myoclonus [Recovered/Resolved]
